FAERS Safety Report 10179342 (Version 1)
Quarter: 2014Q2

REPORT INFORMATION
  Report Type: Spontaneous
  Country: US (occurrence: US)
  Receive Date: 20140519
  Receipt Date: 20140519
  Transmission Date: 20141212
  Serious: Yes (Hospitalization)
  Sender: FDA-Public Use
  Company Number: US-SA-2014SA059599

PATIENT
  Age: 72 Year
  Sex: Female

DRUGS (4)
  1. LANTUS SOLOSTAR [Suspect]
     Indication: DIABETES MELLITUS
     Dosage: DOSE:60 UNIT(S)
     Route: 065
     Dates: start: 2013
  2. SOLOSTAR [Concomitant]
     Indication: DIABETES MELLITUS
     Dates: start: 2013
  3. NOVOLOG [Concomitant]
     Dosage: DOSE: 10-12 UNITS WITH MEALS
  4. METFORMIN [Concomitant]

REACTIONS (3)
  - Urinary tract infection [Recovered/Resolved]
  - Stress [Unknown]
  - Blood glucose increased [Unknown]
